FAERS Safety Report 8535274-9 (Version None)
Quarter: 2012Q3

REPORT INFORMATION
  Report Type: 
  Country: None (occurrence: None)
  Receive Date: 20120725
  Receipt Date: 20120720
  Transmission Date: 20120928
  Serious: Yes (Other)
  Sender: FDA-Public Use
  Company Number: US-TEVA-349567USA

PATIENT
  Sex: Female
  Weight: 54.026 kg

DRUGS (1)
  1. PARAGARD T 380A [Suspect]
     Indication: CONTRACEPTION
     Route: 015
     Dates: start: 20120717, end: 20120717

REACTIONS (2)
  - DEVICE EXPULSION [None]
  - LOSS OF CONSCIOUSNESS [None]
